FAERS Safety Report 10876972 (Version 1)
Quarter: 2015Q1

REPORT INFORMATION
  Report Type: Report from Study
  Country: CA (occurrence: CA)
  Receive Date: 20150302
  Receipt Date: 20150302
  Transmission Date: 20150721
  Serious: Yes (Death, Hospitalization, Other)
  Sender: FDA-Public Use
  Company Number: CA-AMGEN-CANSP2014034749

PATIENT
  Age: 66 Year
  Sex: Female

DRUGS (2)
  1. PROLIA [Suspect]
     Active Substance: DENOSUMAB
     Indication: OSTEOPOROSIS POSTMENOPAUSAL
     Dosage: 60 MG, Q6MO
     Route: 058
     Dates: start: 20110829
  2. COUMADIN [Concomitant]
     Active Substance: WARFARIN SODIUM
     Dosage: UNK

REACTIONS (8)
  - Brain neoplasm [Recovered/Resolved with Sequelae]
  - Speech disorder [Unknown]
  - Depression [Unknown]
  - General physical health deterioration [Unknown]
  - Mobility decreased [Unknown]
  - Death [Fatal]
  - Aggression [Unknown]
  - Asthenia [Unknown]

NARRATIVE: CASE EVENT DATE: 201402
